FAERS Safety Report 10275274 (Version 1)
Quarter: 2014Q3

REPORT INFORMATION
  Report Type: Spontaneous
  Country: US (occurrence: US)
  Receive Date: 20140703
  Receipt Date: 20140703
  Transmission Date: 20150326
  Serious: Yes (Other)
  Sender: FDA-Public Use
  Company Number: US-BRISTOL-MYERS SQUIBB COMPANY-21096722

PATIENT
  Age: 5 Year
  Sex: Female

DRUGS (1)
  1. ABILIFY [Suspect]
     Active Substance: ARIPIPRAZOLE
     Indication: AUTISM

REACTIONS (4)
  - Oedema peripheral [Unknown]
  - Pharyngitis streptococcal [Unknown]
  - Pain in extremity [Unknown]
  - Pneumonia [Unknown]
